FAERS Safety Report 22399923 (Version 1)
Quarter: 2023Q2

REPORT INFORMATION
  Report Type: Other
  Country: None (occurrence: CN)
  Receive Date: 20230602
  Receipt Date: 20230602
  Transmission Date: 20230721
  Serious: Yes (Hospitalization, Other)
  Sender: FDA-Public Use
  Company Number: CN-PAI Holdings, LLC dba Pharmaceutical Associates, Inc.-2142289

PATIENT
  Age: 66 Year
  Sex: Male

DRUGS (3)
  1. LORAZEPAM [Suspect]
     Active Substance: LORAZEPAM
     Indication: Anxiety
     Route: 048
     Dates: start: 20200908
  2. DEVICE [Suspect]
     Active Substance: DEVICE
  3. BUSPIRONE [Suspect]
     Active Substance: BUSPIRONE HYDROCHLORIDE
     Route: 048
     Dates: start: 20200908

REACTIONS (3)
  - Drug interaction [Recovered/Resolved]
  - Neuroleptic malignant syndrome [Recovered/Resolved]
  - Rhabdomyolysis [Recovered/Resolved]
